FAERS Safety Report 4691725-1 (Version None)
Quarter: 2005Q2

REPORT INFORMATION
  Report Type: 
  Country: None (occurrence: None)
  Receive Date: 20050616
  Receipt Date: 20050607
  Transmission Date: 20051028
  Serious: Yes (Death, Other)
  Sender: FDA-Public Use
  Company Number: 200515508GDDC

PATIENT
  Age: 66 Year
  Sex: Male

DRUGS (5)
  1. LASIX [Suspect]
  2. AMIODARONE [Suspect]
     Route: 048
  3. DIGOXIN [Suspect]
  4. SLOW-K [Suspect]
     Dosage: DOSE: UNK
  5. VENTOLIN [Concomitant]

REACTIONS (5)
  - BRADYCARDIA [None]
  - CARDIAC ARREST [None]
  - HYPOTENSION [None]
  - MYOCARDIAL INFARCTION [None]
  - SYNCOPE [None]
